FAERS Safety Report 8543836-8 (Version None)
Quarter: 2012Q3

REPORT INFORMATION
  Report Type: 
  Country: None (occurrence: None)
  Receive Date: 20120727
  Receipt Date: 20120724
  Transmission Date: 20120928
  Serious: Yes (Other)
  Sender: FDA-Public Use
  Company Number: NL-PFIZER INC-2012169121

PATIENT
  Sex: Male

DRUGS (4)
  1. LATANOPROST [Suspect]
     Indication: GLAUCOMA
     Dosage: UNK
  2. ATACAND [Concomitant]
     Dosage: 4 MG, UNK
  3. ATORVASTATIN CALCIUM [Concomitant]
     Dosage: 20 MG, UNK
  4. METFORMIN [Concomitant]
     Dosage: 500 MG, UNK

REACTIONS (3)
  - CHEST DISCOMFORT [None]
  - DYSPNOEA [None]
  - COUGH [None]
